FAERS Safety Report 9346922 (Version 15)
Quarter: 2014Q2

REPORT INFORMATION
  Report Type: Spontaneous
  Country: US (occurrence: US)
  Receive Date: 20130613
  Receipt Date: 20140415
  Transmission Date: 20141212
  Serious: Yes (Death, Other)
  Sender: FDA-Public Use
  Company Number: PHEH2013US012714

PATIENT
  Age: 57 Year
  Sex: Female

DRUGS (14)
  1. ZOMETA [Suspect]
     Indication: NEOPLASM MALIGNANT
     Dosage: 4 MG
     Route: 041
  2. ZOMETA [Suspect]
     Indication: BREAST CANCER METASTATIC
  3. XELODA [Concomitant]
  4. PROZAC [Concomitant]
  5. CYTOXAN [Concomitant]
     Dosage: 870 MG
     Route: 042
  6. HALAVEN [Concomitant]
     Dosage: 2.5 MG
     Route: 042
  7. FASLODEX [Concomitant]
  8. AVASTIN [Concomitant]
  9. GEMZAR [Concomitant]
     Dosage: 1000 MG
  10. ALOXI [Concomitant]
  11. TAXOL [Concomitant]
     Dosage: 15 MG
  12. KLONOPIN [Concomitant]
     Dosage: 0.5 MG
  13. NAVELBINE [Concomitant]
  14. DOXIL [Concomitant]

REACTIONS (145)
  - Death [Fatal]
  - Osteonecrosis of jaw [Unknown]
  - Discomfort [Unknown]
  - Deformity [Unknown]
  - Dysphagia [Unknown]
  - Anhedonia [Unknown]
  - Injury [Unknown]
  - Anxiety [Unknown]
  - Physical disability [Unknown]
  - Emotional distress [Unknown]
  - Cellulitis [Unknown]
  - Depression [Unknown]
  - Uterine enlargement [Unknown]
  - Sinusitis [Unknown]
  - Nephrolithiasis [Unknown]
  - Epistaxis [Unknown]
  - Facet joint syndrome [Unknown]
  - Thrombocytopenia [Unknown]
  - Anaemia [Unknown]
  - Lyme disease [Unknown]
  - Pneumonia [Unknown]
  - Neuropathy peripheral [Unknown]
  - Hypothyroidism [Unknown]
  - Diabetes mellitus [Unknown]
  - Fall [Unknown]
  - Exposed bone in jaw [Unknown]
  - Spinal column stenosis [Unknown]
  - Radiculopathy [Unknown]
  - Breast cancer metastatic [Unknown]
  - Mitral valve prolapse [Unknown]
  - Herpes simplex [Unknown]
  - Ascites [Unknown]
  - Pleural effusion [Unknown]
  - Bronchiectasis [Unknown]
  - Arteriosclerosis [Unknown]
  - Arteriosclerosis coronary artery [Unknown]
  - Pericardial effusion [Unknown]
  - Metastases to liver [Unknown]
  - Jaundice [Unknown]
  - Oedema peripheral [Unknown]
  - Vertebral osteophyte [Unknown]
  - Vertebral foraminal stenosis [Unknown]
  - Pulmonary mass [Unknown]
  - Arthritis [Unknown]
  - Nasal turbinate hypertrophy [Unknown]
  - Nasal septum deviation [Unknown]
  - Splenomegaly [Unknown]
  - Osteosclerosis [Unknown]
  - Metastases to bone [Unknown]
  - Lymphadenopathy [Unknown]
  - Limb injury [Unknown]
  - Monoplegia [Unknown]
  - Jaw fracture [Unknown]
  - Cerebellar atrophy [Unknown]
  - Atelectasis [Unknown]
  - Soft tissue necrosis [Unknown]
  - Respiratory disorder [Unknown]
  - Alopecia [Unknown]
  - Cervical spinal stenosis [Unknown]
  - Breast calcifications [Unknown]
  - Mitral valve incompetence [Unknown]
  - Influenza [Unknown]
  - Melanocytic naevus [Unknown]
  - Skin irritation [Unknown]
  - Haemangioma [Unknown]
  - Cervical radiculopathy [Unknown]
  - Hypoaesthesia [Unknown]
  - Muscle atrophy [Unknown]
  - Neuralgic amyotrophy [Unknown]
  - Brachial plexopathy [Unknown]
  - Bladder pain [Unknown]
  - Renal pain [Unknown]
  - Urinary tract infection [Unknown]
  - Abdominal distension [Unknown]
  - Dyspnoea exertional [Unknown]
  - Decreased appetite [Unknown]
  - Premature menopause [Unknown]
  - Malignant ascites [Unknown]
  - Metastases to lung [Unknown]
  - Lung infiltration [Unknown]
  - Intervertebral disc protrusion [Unknown]
  - Spinal osteoarthritis [Unknown]
  - Intervertebral disc degeneration [Unknown]
  - Bone deformity [Unknown]
  - Arthropathy [Unknown]
  - Intestinal obstruction [Unknown]
  - Bladder dilatation [Unknown]
  - Metastases to spine [Unknown]
  - Localised infection [Unknown]
  - Erythema induratum [Unknown]
  - Lymphoedema [Unknown]
  - Bronchitis [Unknown]
  - Oral herpes [Unknown]
  - Skin abrasion [Unknown]
  - Cheilitis [Unknown]
  - Stomatitis [Unknown]
  - Pain [Unknown]
  - Immunodeficiency [Unknown]
  - Breast cellulitis [Unknown]
  - Lip ulceration [Unknown]
  - Bronchospasm [Unknown]
  - Sensory loss [Unknown]
  - Waist circumference increased [Unknown]
  - Spinal cord neoplasm [Unknown]
  - Hepatomegaly [Unknown]
  - Hepatic lesion [Unknown]
  - Gallbladder disorder [Unknown]
  - Leukocytosis [Unknown]
  - Abdominal wound dehiscence [Unknown]
  - Hypersensitivity [Unknown]
  - Neuralgia [Unknown]
  - Blister [Unknown]
  - Pain in jaw [Unknown]
  - Tachycardia [Unknown]
  - Device leakage [Unknown]
  - Oedema [Unknown]
  - Metastases to peritoneum [Unknown]
  - Rhinitis allergic [Unknown]
  - Back pain [Unknown]
  - Abdominal pain [Not Recovered/Not Resolved]
  - Headache [Unknown]
  - Oropharyngeal pain [Unknown]
  - Muscular weakness [Unknown]
  - Bone pain [Unknown]
  - Pyrexia [Unknown]
  - Fatigue [Unknown]
  - Muscle spasms [Unknown]
  - Gait disturbance [Unknown]
  - Arthralgia [Unknown]
  - Musculoskeletal pain [Unknown]
  - Pain in extremity [Unknown]
  - Paraesthesia [Unknown]
  - Dyspepsia [Unknown]
  - Ear pain [Unknown]
  - Malaise [Unknown]
  - Cough [Unknown]
  - Nausea [Unknown]
  - Vomiting [Unknown]
  - Chills [Unknown]
  - Insomnia [Unknown]
  - Rash [Unknown]
  - Weight increased [Unknown]
  - Asthenia [Unknown]
  - Hyponatraemia [Unknown]
  - Nasal congestion [Unknown]
